FAERS Safety Report 9420167 (Version 1)
Quarter: 2013Q3

REPORT INFORMATION
  Report Type: Spontaneous
  Country: FR (occurrence: FR)
  Receive Date: 20130725
  Receipt Date: 20130725
  Transmission Date: 20140515
  Serious: Yes (Hospitalization)
  Sender: FDA-Public Use
  Company Number: FR-SANOFI-AVENTIS-2013SA072894

PATIENT
  Age: 2 Month
  Sex: 0

DRUGS (2)
  1. LASILIX [Suspect]
     Indication: CARDIAC FAILURE
     Route: 065
     Dates: start: 20130619, end: 20130619
  2. LASILIX [Suspect]
     Indication: CARDIAC FAILURE
     Dosage: .5 MG/KG/12H?2MG MORNING AND EVENING
     Route: 065

REACTIONS (2)
  - Overdose [Unknown]
  - Incorrect dose administered [Unknown]
